FAERS Safety Report 10645304 (Version 1)
Quarter: 2014Q4

REPORT INFORMATION
  Report Type: Report from Study
  Country: JP (occurrence: JP)
  Receive Date: 20141211
  Receipt Date: 20141211
  Transmission Date: 20150529
  Serious: Yes (Hospitalization)
  Sender: FDA-Public Use
  Company Number: PHHY2014JP161860

PATIENT
  Age: 75 Year
  Sex: Male
  Weight: 62.2 kg

DRUGS (2)
  1. DESFERAL [Concomitant]
     Active Substance: DEFEROXAMINE MESYLATE
     Indication: PRODUCT USED FOR UNKNOWN INDICATION
     Route: 048
     Dates: start: 20070901
  2. ICL670A [Suspect]
     Active Substance: DEFERASIROX
     Indication: IRON OVERLOAD
     Route: 048
     Dates: start: 20080701

REACTIONS (6)
  - Gastric ulcer haemorrhage [Recovered/Resolved]
  - Mallory-Weiss syndrome [Unknown]
  - Faeces discoloured [Unknown]
  - Decreased appetite [Unknown]
  - Anaemia [Unknown]
  - Abdominal discomfort [Recovered/Resolved]

NARRATIVE: CASE EVENT DATE: 20090209
